FAERS Safety Report 8934794 (Version 1)
Quarter: 2012Q4

REPORT INFORMATION
  Report Type: 
  Country: VN (occurrence: VN)
  Receive Date: 20121129
  Receipt Date: 20121129
  Transmission Date: 20130627
  Serious: Yes (Death)
  Sender: FDA-Public Use
  Company Number: VN-BAXTER-2012BAX024895

PATIENT
  Age: 75 Year
  Sex: Male

DRUGS (1)
  1. DIANEAL LOW CALCIUM (2,5MEQ.L) PERITIONEAL DIALYSIS SOLUTION WITH 1.5% [Suspect]
     Indication: CAPD
     Route: 033
     Dates: start: 20101013, end: 20121030

REACTIONS (2)
  - Asthenia [Fatal]
  - Hypophagia [Unknown]
